FAERS Safety Report 7655255-7 (Version None)
Quarter: 2011Q3

REPORT INFORMATION
  Report Type: 
  Country: None (occurrence: None)
  Receive Date: 20110804
  Receipt Date: 20110725
  Transmission Date: 20111222
  Serious: Yes (Other)
  Sender: FDA-Public Use
  Company Number: US-JNJFOC-20110711319

PATIENT
  Age: 56 Year
  Sex: Male
  Weight: 96.16 kg

DRUGS (6)
  1. IMODIUM MULTI-SYMPTOM RELIEF [Suspect]
     Route: 048
  2. IMODIUM MULTI-SYMPTOM RELIEF [Suspect]
     Indication: DIARRHOEA
     Dosage: STARTED WITH 2 CAPLETS AND DECREASED THE DOSAGE TO 1 CAPLET AFTERWARDS, INTERVALS UNSPECIFIED
     Route: 048
     Dates: start: 20110722, end: 20110722
  3. BENAZEPRIL HYDROCHLORIDE [Concomitant]
     Indication: HYPERTENSION
     Dosage: SINCE SEVERAL YEARS
     Route: 065
  4. LIPITOR [Concomitant]
     Indication: BLOOD CHOLESTEROL INCREASED
     Dosage: SINCE ABOUT 1 YEAR
     Route: 065
  5. UROXATRAL [Concomitant]
     Indication: PROSTATOMEGALY
     Dosage: FROM ABOUT 2 YEARS
     Route: 065
  6. FINASTERIDE [Concomitant]
     Indication: PROSTATOMEGALY
     Route: 065
     Dates: start: 20110101

REACTIONS (7)
  - SYNCOPE [None]
  - THINKING ABNORMAL [None]
  - COLD SWEAT [None]
  - BODY TEMPERATURE DECREASED [None]
  - OVERDOSE [None]
  - CONSTIPATION [None]
  - DIZZINESS [None]
